FAERS Safety Report 9969249 (Version 1)
Quarter: 2014Q1

REPORT INFORMATION
  Report Type: Spontaneous
  Country: US (occurrence: US)
  Receive Date: 20140306
  Receipt Date: 20140306
  Transmission Date: 20141002
  Serious: No
  Sender: FDA-Public Use
  Company Number: US-BIOGENIDEC-2014BI018146

PATIENT
  Age: 31 Year
  Sex: Male

DRUGS (1)
  1. TECFIDERA [Suspect]
     Indication: MULTIPLE SCLEROSIS
     Route: 048
     Dates: start: 201310

REACTIONS (8)
  - Paraesthesia [Unknown]
  - Gait disturbance [Unknown]
  - Balance disorder [Unknown]
  - Dizziness [Unknown]
  - Constipation [Unknown]
  - Dry mouth [Unknown]
  - Abdominal discomfort [Unknown]
  - Flushing [Unknown]
